FAERS Safety Report 9158656 (Version 1)
Quarter: 2013Q1

REPORT INFORMATION
  Report Type: Spontaneous
  Country: BR (occurrence: BR)
  Receive Date: 20130312
  Receipt Date: 20130312
  Transmission Date: 20140127
  Serious: Yes (Hospitalization)
  Sender: FDA-Public Use
  Company Number: BR-ELI_LILLY_AND_COMPANY-BR201303000327

PATIENT
  Age: 86 Year
  Sex: Female
  Weight: 80 kg

DRUGS (16)
  1. HUMALOG LISPRO [Suspect]
     Indication: TYPE 2 DIABETES MELLITUS
     Dosage: 3 IU, EACH EVENING
     Route: 058
     Dates: start: 201211, end: 20130226
  2. HUMALOG LISPRO [Suspect]
     Dosage: 2 IU, EACH MORNING
     Route: 058
     Dates: start: 20130227
  3. HUMALOG LISPRO [Suspect]
     Dosage: 4 IU, OTHER
     Route: 058
     Dates: start: 20130227
  4. HUMALOG LISPRO [Suspect]
     Dosage: 4 IU, EACH EVENING
     Route: 058
  5. GLUCOVANCE [Concomitant]
     Indication: DIABETES MELLITUS
     Dosage: UNK, UNKNOWN
     Route: 065
     Dates: end: 201302
  6. DIOVAN [Concomitant]
     Dosage: 320 MG, UNKNOWN
     Route: 065
  7. MAREVAN [Concomitant]
     Dosage: UNK, UNKNOWN
     Route: 065
  8. PLAVIX [Concomitant]
     Dosage: 40 MG, UNKNOWN
     Route: 065
  9. DIVELOL [Concomitant]
     Dosage: 25 MG, BID
     Route: 065
  10. ALDACTONE [Concomitant]
     Dosage: UNK, UNKNOWN
     Route: 065
  11. MONOCORDIL [Concomitant]
     Dosage: UNK, UNKNOWN
     Route: 065
  12. CRESTOR [Concomitant]
     Dosage: UNK, UNKNOWN
     Route: 065
  13. MACRODANTINA [Concomitant]
     Dosage: 100 MG, UNKNOWN
  14. ZOLOFT [Concomitant]
     Dosage: UNK, UNKNOWN
     Route: 065
  15. LANTUS [Concomitant]
     Indication: DIABETES MELLITUS
     Dosage: UNK, UNKNOWN
     Route: 065
  16. FLUNITRAZEPAM [Concomitant]
     Indication: DEPRESSION
     Dosage: UNK, UNKNOWN
     Route: 065

REACTIONS (4)
  - Anaemia [Unknown]
  - Pulmonary oedema [Unknown]
  - Blood glucose increased [Unknown]
  - Incorrect storage of drug [Unknown]
